FAERS Safety Report 8102768-X (Version None)
Quarter: 2012Q1

REPORT INFORMATION
  Report Type: 
  Country: None (occurrence: None)
  Receive Date: 20120201
  Receipt Date: 20120127
  Transmission Date: 20120608
  Serious: No
  Sender: FDA-Public Use
  Company Number: US-PFIZER INC-2012023392

PATIENT
  Sex: Female
  Weight: 79.365 kg

DRUGS (6)
  1. NIFEDIPINE [Suspect]
     Indication: BLOOD PRESSURE ABNORMAL
     Dosage: 30 MG, DAILY
     Route: 048
     Dates: start: 20111201
  2. NIFEDIPINE [Suspect]
     Dosage: 60 MG, DAILY
     Route: 048
     Dates: start: 20111201
  3. NIFEDIPINE [Suspect]
     Dosage: 90 MG, DAILY
     Route: 048
     Dates: start: 20111201
  4. ATACAND [Concomitant]
     Indication: BLOOD PRESSURE ABNORMAL
     Dosage: 32 MG, DAILY
  5. BYSTOLIC [Concomitant]
     Indication: BLOOD PRESSURE ABNORMAL
     Dosage: 20 MG, DAILY
  6. HYDROCHLOROTHIAZIDE [Concomitant]
     Indication: BLOOD PRESSURE ABNORMAL
     Dosage: 25 MG, DAILY

REACTIONS (3)
  - PRODUCT QUALITY ISSUE [None]
  - POOR QUALITY DRUG ADMINISTERED [None]
  - BLOOD PRESSURE FLUCTUATION [None]
